FAERS Safety Report 16088441 (Version 1)
Quarter: 2019Q1

REPORT INFORMATION
  Report Type: Spontaneous
  Country: FR (occurrence: FR)
  Receive Date: 20190319
  Receipt Date: 20190319
  Transmission Date: 20190418
  Serious: Yes (Other)
  Sender: FDA-Public Use
  Company Number: FR-BEH-2019098515

PATIENT
  Age: 25 Year
  Sex: Female
  Weight: 51 kg

DRUGS (8)
  1. ARTELAC                            /00445101/ [Concomitant]
     Active Substance: HYPROMELLOSES
     Dosage: INCONNUE
     Route: 047
  2. LOVENOX [Concomitant]
     Active Substance: ENOXAPARIN SODIUM
     Dosage: INCONNUE
     Route: 058
  3. DOLIPRANE [Concomitant]
     Active Substance: ACETAMINOPHEN
     Dosage: INCONNUE
     Route: 048
  4. LYRICA [Concomitant]
     Active Substance: PREGABALIN
     Dosage: INCONNUE
     Route: 048
  5. ALPRAZOLAM. [Concomitant]
     Active Substance: ALPRAZOLAM
     Dosage: UNK
     Route: 048
  6. VITAMINE A [Concomitant]
     Active Substance: RETINOL
     Dosage: 2 DF, QD
     Route: 065
  7. ATARAX [Concomitant]
     Active Substance: HYDROXYZINE HYDROCHLORIDE
     Dosage: UNK
     Route: 048
     Dates: start: 20181015
  8. PRIVIGEN [Suspect]
     Active Substance: HUMAN IMMUNOGLOBULIN G
     Indication: PARAESTHESIA
     Dosage: 102 G, UNK
     Route: 042
     Dates: start: 20181029, end: 20181102

REACTIONS (2)
  - Hypersensitivity [Unknown]
  - Neutropenia [Recovered/Resolved]

NARRATIVE: CASE EVENT DATE: 20181120
